FAERS Safety Report 10174523 (Version 1)
Quarter: 2014Q2

REPORT INFORMATION
  Report Type: Spontaneous
  Country: US (occurrence: US)
  Receive Date: 20140515
  Receipt Date: 20140515
  Transmission Date: 20141212
  Serious: Yes (Hospitalization)
  Sender: FDA-Public Use
  Company Number: US-BAYER-2014-070983

PATIENT
  Age: 36 Year
  Sex: Female
  Weight: 61.9 kg

DRUGS (14)
  1. YASMIN [Suspect]
  2. RELPAX [Concomitant]
     Dosage: 40 MG, UNK
  3. IBUPROFEN [Concomitant]
  4. VELOSULIN [INSULIN] [Concomitant]
  5. PHENERGAN [Concomitant]
     Dosage: 12.5 MG, UNK
     Route: 042
  6. ANZEMET [Concomitant]
     Dosage: 12.5 MG, UNK
     Route: 042
  7. DEMEROL [Concomitant]
     Dosage: 25 MG, UNK
     Route: 042
  8. OXYCODONE [Concomitant]
  9. TYLENOL SINUS MEDICATION [Concomitant]
     Dosage: UNK UNK, PRN
  10. HYDROCODONE [Concomitant]
     Dosage: UNK UNK, PRN
  11. REGLAN [Concomitant]
     Dosage: UNK UNK, TID
  12. TYLENOL WITH CODEINE [Concomitant]
  13. PROMETHAZINE [Concomitant]
  14. VICODIN [Concomitant]

REACTIONS (4)
  - Superior sagittal sinus thrombosis [None]
  - Cerebrovascular accident [None]
  - Transverse sinus thrombosis [None]
  - Jugular vein thrombosis [None]
